FAERS Safety Report 9666045 (Version 2)
Quarter: 2013Q4

REPORT INFORMATION
  Report Type: Spontaneous
  Country: MX (occurrence: MX)
  Receive Date: 20131104
  Receipt Date: 20131115
  Transmission Date: 20140711
  Serious: Yes (Death, Life-Threatening, Hospitalization)
  Sender: FDA-Public Use
  Company Number: MX-BIOGENIDEC-2013BI103927

PATIENT
  Age: 55 Year
  Sex: Female

DRUGS (1)
  1. TYSABRI [Suspect]
     Indication: MULTIPLE SCLEROSIS
     Route: 042
     Dates: end: 201309

REACTIONS (5)
  - Acute abdomen [Not Recovered/Not Resolved]
  - Gastrointestinal necrosis [Not Recovered/Not Resolved]
  - Septic shock [Not Recovered/Not Resolved]
  - Peritonitis [Unknown]
  - Death [Fatal]
